FAERS Safety Report 21119024 (Version 2)
Quarter: 2022Q3

REPORT INFORMATION
  Report Type: Spontaneous
  Country: US (occurrence: US)
  Receive Date: 20220722
  Receipt Date: 20220920
  Transmission Date: 20221027
  Serious: No
  Sender: FDA-Public Use
  Company Number: US-NOVARTISTESTPH-NVSC2022US166638

PATIENT
  Sex: Female

DRUGS (1)
  1. LATANOPROST [Suspect]
     Active Substance: LATANOPROST
     Indication: Product used for unknown indication
     Dosage: UNK (2,5 ML LDP US)
     Route: 065

REACTIONS (4)
  - Nervousness [Unknown]
  - Incorrect dose administered [Unknown]
  - Product container issue [Unknown]
  - Product delivery mechanism issue [Unknown]
